FAERS Safety Report 5660048-6 (Version None)
Quarter: 2008Q1

REPORT INFORMATION
  Report Type: 
  Country: None (occurrence: None)
  Receive Date: 20080311
  Receipt Date: 20070904
  Transmission Date: 20080703
  Serious: No
  Sender: FDA-Public Use
  Company Number: US-BAYER-200712839BCC

PATIENT
  Age: 64 Year
  Sex: Female
  Weight: 113 kg

DRUGS (6)
  1. ALEVE [Suspect]
     Indication: DRUG USE FOR UNKNOWN INDICATION
     Route: 048
     Dates: start: 20070101
  2. ALEVE [Suspect]
     Indication: ARTHRALGIA
     Dosage: TOTAL DAILY DOSE: 220 MG  UNIT DOSE: 220 MG
     Route: 048
     Dates: start: 20070831
  3. AVANDAMET [Concomitant]
  4. ZOCOR [Concomitant]
  5. HYDROCORTISONE [Concomitant]
  6. ASPIRIN [Concomitant]

REACTIONS (1)
  - RASH GENERALISED [None]
